FAERS Safety Report 14088634 (Version 3)
Quarter: 2019Q1

REPORT INFORMATION
  Report Type: Report from Study
  Country: JP (occurrence: JP)
  Receive Date: 20171013
  Receipt Date: 20190329
  Transmission Date: 20190417
  Serious: Yes (Death, Hospitalization, Other)
  Sender: FDA-Public Use
  Company Number: JP-AMGEN-JPNNI2017154435

PATIENT
  Age: 47 Year
  Sex: Female
  Weight: 74.5 kg

DRUGS (6)
  1. CARFILZOMIB [Suspect]
     Active Substance: CARFILZOMIB
     Indication: PLASMA CELL MYELOMA
     Dosage: 20 MILLIGRAM/SQ. METER
     Route: 041
     Dates: start: 20170906, end: 20170907
  2. CARFILZOMIB [Suspect]
     Active Substance: CARFILZOMIB
     Dosage: 56 MG/M2(7/11/2017,8/11,14/11)
     Route: 041
     Dates: start: 20171107, end: 20171114
  3. DEXAMETHASONE. [Concomitant]
     Active Substance: DEXAMETHASONE
     Indication: PLASMA CELL MYELOMA
     Dosage: 20 MG(6/9/2017,7/9,13/9,14/9,25/9,26/9,2/10,3/10)
     Route: 065
     Dates: start: 20170906, end: 20171003
  4. VICCLOX [ACICLOVIR] [Concomitant]
     Indication: ANTIVIRAL PROPHYLAXIS
     Dosage: 200 MILLIGRAM
     Route: 065
  5. DEXAMETHASONE. [Concomitant]
     Active Substance: DEXAMETHASONE
     Dosage: 20 MG(17/10/2017,18/10,24/10,25/10,7/11,8/11,14/11,15/11)
     Route: 065
     Dates: start: 20171017, end: 20171115
  6. CARFILZOMIB [Suspect]
     Active Substance: CARFILZOMIB
     Dosage: 56 MG/M2(13/9/2017,14/9,25/9,26/9,17/10,18/10,24/10,25/10)
     Route: 041
     Dates: start: 20170913, end: 20171025

REACTIONS (2)
  - Pancreatitis [Recovered/Resolved]
  - Acute kidney injury [Recovered/Resolved]

NARRATIVE: CASE EVENT DATE: 2017
